APPROVED DRUG PRODUCT: NAFCILLIN SODIUM
Active Ingredient: NAFCILLIN SODIUM
Strength: EQ 1GM BASE/VIAL
Dosage Form/Route: INJECTABLE;INJECTION
Application: A090582 | Product #001 | TE Code: AP
Applicant: SAGENT PHARMACEUTICALS INC
Approved: Aug 24, 2012 | RLD: No | RS: No | Type: RX